FAERS Safety Report 7368263-0 (Version None)
Quarter: 2011Q1

REPORT INFORMATION
  Report Type: 
  Country: None (occurrence: None)
  Receive Date: 20110323
  Receipt Date: 20091119
  Transmission Date: 20110831
  Serious: Yes (Other)
  Sender: FDA-Public Use
  Company Number: US-BAYER-200939937NA

PATIENT
  Sex: Female
  Weight: 79.365 kg

DRUGS (35)
  1. LIPITOR [Concomitant]
     Dosage: 25 MG, BID
     Route: 048
  2. VERSED [Concomitant]
     Dosage: 5 MG, UNK
     Dates: start: 20030702
  3. ANCEF [Concomitant]
     Dosage: 2 G, UNK
     Route: 042
     Dates: start: 20030702
  4. MORPHINE [Concomitant]
     Dosage: UNK
     Route: 042
  5. PEPCID [Concomitant]
     Route: 048
  6. PAVULON [Concomitant]
     Dosage: UNK
     Dates: start: 20030702
  7. HEPARIN [Concomitant]
     Dosage: 29100 U, UNK
     Route: 042
     Dates: start: 20030702
  8. VERAPAMIL HCL A [Concomitant]
     Dosage: 5 MG, UNK
     Dates: start: 20030702
  9. VANCOMYCIN [Concomitant]
     Dosage: 2 G, UNK
     Route: 061
     Dates: start: 20030702
  10. CALCIUM CHLORIDE [Concomitant]
     Dosage: 7 G, UNK
     Dates: start: 20030702
  11. TENECTEPLASE [Concomitant]
     Dosage: UNK
     Route: 042
     Dates: start: 20030628
  12. LIDOCAINE [Concomitant]
     Dosage: 200 MG, UNK
     Dates: start: 20030702
  13. CEFAZOLIN [Concomitant]
     Dosage: 2 G, UNK
     Route: 042
     Dates: start: 20030702
  14. NORMOSOL R [Concomitant]
     Dosage: 400 ML, UNK
     Dates: start: 20030702
  15. HEPARIN [Concomitant]
     Dosage: 5000 U, UNK
     Route: 042
     Dates: start: 20030628
  16. LASIX [Concomitant]
     Indication: FLUID RETENTION
     Dosage: UNK
     Route: 048
     Dates: start: 20030101
  17. PROTAMINE SULFATE [Concomitant]
     Dosage: 290 MG, UNK
     Dates: start: 20030702
  18. SODIUM BICARBONATE [Concomitant]
     Dosage: 50 MEQ, UNK
     Dates: start: 20030702
  19. SPIRONOLACTONE [Concomitant]
     Indication: FLUID RETENTION
     Dosage: UNK
     Route: 048
     Dates: start: 20030101
  20. LORTAB [Concomitant]
     Indication: PAIN
     Dosage: UNK
     Route: 048
     Dates: start: 20030101
  21. NEO-SYNEPHRINOL [Concomitant]
     Dosage: UNK
     Route: 042
     Dates: start: 20030702
  22. PAPAVERINE [Concomitant]
     Dosage: 210 MG, UNK
     Dates: start: 20030702
  23. GENTAMICIN [Concomitant]
     Dosage: 80 MG, UNK
     Route: 061
     Dates: start: 20030702
  24. CARDIOPLEGIA [Concomitant]
     Dosage: 200 MG, UNK
     Route: 042
     Dates: start: 20030702
  25. MANNITOL [Concomitant]
     Indication: VASODILATION PROCEDURE
     Dosage: 12.5 MG, UNK
     Route: 042
     Dates: start: 20030702
  26. ALTACE [Concomitant]
     Dosage: 5.0 MG, UNK
     Route: 048
     Dates: start: 20030628
  27. ASPIRIN [Concomitant]
     Dosage: UNK
     Route: 048
     Dates: start: 20030628
  28. NITROGLYCERIN [Concomitant]
     Dosage: 1 UNK, UNK
     Route: 061
     Dates: start: 20030628
  29. TOPROL-XL [Concomitant]
     Dosage: UNK
     Route: 048
     Dates: start: 20030101
  30. DIOVAN [Concomitant]
     Indication: HYPERTENSION
     Dosage: UNK
     Dates: start: 20030101
  31. RED BLOOD CELLS [Concomitant]
     Dosage: UNK
     Route: 042
     Dates: start: 20030602
  32. FENTANYL [Concomitant]
     Dosage: 15 ML, UNK
     Dates: start: 20030702
  33. TRASYLOL [Suspect]
     Indication: CORONARY ARTERY BYPASS
     Dosage: UNK
     Route: 042
     Dates: start: 20030702, end: 20030702
  34. LOPRESSOR [Concomitant]
     Dosage: UNK
  35. NITROGLYCERIN [Concomitant]
     Indication: VASODILATION PROCEDURE
     Dosage: 30 ML, UNK
     Dates: start: 20030702

REACTIONS (9)
  - RENAL FAILURE [None]
  - ANXIETY [None]
  - DEPRESSION [None]
  - ANHEDONIA [None]
  - PAIN [None]
  - RENAL INJURY [None]
  - UNEVALUABLE EVENT [None]
  - FEAR [None]
  - INJURY [None]
